FAERS Safety Report 5327181-X (Version None)
Quarter: 2007Q2

REPORT INFORMATION
  Report Type: 
  Country: None (occurrence: None)
  Receive Date: 20070514
  Receipt Date: 20070504
  Transmission Date: 20071010
  Serious: Yes (Hospitalization)
  Sender: FDA-Public Use
  Company Number: 2007SP008668

PATIENT
  Age: 48 Year
  Sex: Male
  Weight: 92 kg

DRUGS (5)
  1. PEG-INTRON [Suspect]
     Indication: HEPATITIS C
     Dosage: 150 MCG; QW; SC
     Route: 058
     Dates: start: 20070209, end: 20070429
  2. REBETOL [Suspect]
     Indication: HEPATITIS C
     Dosage: 800 MG; QD; PO
     Route: 048
     Dates: start: 20070209, end: 20070429
  3. PROCRIT [Suspect]
     Indication: ANAEMIA
     Dosage: 40000 UNK; QW; SC
     Route: 058
     Dates: start: 20070309, end: 20070429
  4. SPIRONOLACTONE [Concomitant]
  5. LASIX [Concomitant]

REACTIONS (7)
  - ANAEMIA [None]
  - ASTHENIA [None]
  - INFECTION [None]
  - LEUKOCYTOSIS [None]
  - MYALGIA [None]
  - PAIN [None]
  - SHIFT TO THE LEFT [None]
